FAERS Safety Report 8191096-2 (Version None)
Quarter: 2012Q1

REPORT INFORMATION
  Report Type: 
  Country: None (occurrence: None)
  Receive Date: 20120307
  Receipt Date: 20120301
  Transmission Date: 20120608
  Serious: Yes (Other)
  Sender: FDA-Public Use
  Company Number: TH-VIIV HEALTHCARE LIMITED-A0949603B

PATIENT
  Sex: Female

DRUGS (6)
  1. LAMIVUDINE (EPIVIR HBV) [Suspect]
     Indication: HIV INFECTION
     Route: 064
  2. RITONAVIR [Suspect]
     Indication: HIV INFECTION
     Route: 064
  3. TRUVADA [Suspect]
     Indication: HIV INFECTION
     Route: 064
  4. ALESSE [Concomitant]
     Route: 064
  5. ATAZANAVIR [Suspect]
     Indication: HIV INFECTION
     Route: 064
  6. EFAVIRENZ [Suspect]
     Indication: HIV INFECTION
     Route: 064

REACTIONS (3)
  - JAUNDICE NEONATAL [None]
  - PREMATURE BABY [None]
  - FOETAL EXPOSURE DURING PREGNANCY [None]
